FAERS Safety Report 24226545 (Version 2)
Quarter: 2024Q4

REPORT INFORMATION
  Report Type: Spontaneous
  Country: JP (occurrence: JP)
  Receive Date: 20240820
  Receipt Date: 20241009
  Transmission Date: 20250114
  Serious: Yes (Hospitalization)
  Sender: JOHNSON AND JOHNSON
  Company Number: JP-JNJFOC-20240849331

PATIENT
  Age: 83 Year
  Sex: Male

DRUGS (1)
  1. ZYTIGA [Suspect]
     Active Substance: ABIRATERONE ACETATE
     Indication: Prostate cancer
     Dosage: AT BEDTIME
     Route: 048
     Dates: start: 2024

REACTIONS (3)
  - Hospitalisation [Unknown]
  - Abnormal faeces [Unknown]
  - Off label use [Unknown]

NARRATIVE: CASE EVENT DATE: 20240101
